FAERS Safety Report 7286095-9 (Version None)
Quarter: 2011Q1

REPORT INFORMATION
  Report Type: 
  Country: None (occurrence: None)
  Receive Date: 20110131
  Receipt Date: 20110113
  Transmission Date: 20110831
  Serious: Yes (Death)
  Sender: FDA-Public Use
  Company Number: IMP_05339_2011

PATIENT
  Age: 34 Year
  Sex: Male

DRUGS (2)
  1. OXYMORPHONE [Suspect]
     Indication: PRODUCT USED FOR UNKNOWN INDICATION
     Dosage: (DF RESPIRATORY (INHALATION))
     Route: 055
  2. HEROIN [Suspect]
     Dosage: (RESPIRATORY (INHALATION))
     Route: 055

REACTIONS (5)
  - INTENTIONAL DRUG MISUSE [None]
  - RESPIRATORY ARREST [None]
  - POISONING [None]
  - INCORRECT ROUTE OF DRUG ADMINISTRATION [None]
  - CARDIAC ARREST [None]
